FAERS Safety Report 18645018 (Version 2)
Quarter: 2021Q1

REPORT INFORMATION
  Report Type: Spontaneous
  Country: US (occurrence: US)
  Receive Date: 20201221
  Receipt Date: 20210322
  Transmission Date: 20210419
  Serious: Yes (Hospitalization, Other)
  Sender: FDA-Public Use
  Company Number: US-BRISTOL-MYERS SQUIBB COMPANY-BMS-2020-108076

PATIENT
  Age: 57 Year
  Sex: Male
  Weight: 66.7 kg

DRUGS (3)
  1. OPDIVO [Suspect]
     Active Substance: NIVOLUMAB
     Indication: RENAL CANCER
     Dosage: UNK UNK, Q3WK
     Route: 065
     Dates: start: 201810
  2. OPDIVO [Suspect]
     Active Substance: NIVOLUMAB
     Dosage: 480 MILLIGRAM, Q4WK
     Route: 065
  3. IPILIMUMAB [Suspect]
     Active Substance: IPILIMUMAB
     Indication: RENAL CANCER
     Dosage: UNK, Q3WK
     Route: 065
     Dates: start: 201810

REACTIONS (7)
  - Oedema [Unknown]
  - Cortisol decreased [Unknown]
  - Decreased appetite [Unknown]
  - Weight decreased [Unknown]
  - Crohn^s disease [Unknown]
  - Diarrhoea [Unknown]
  - Cardiac disorder [Unknown]

NARRATIVE: CASE EVENT DATE: 201811
